FAERS Safety Report 6919527-3 (Version None)
Quarter: 2010Q3

REPORT INFORMATION
  Report Type: 
  Country: None (occurrence: None)
  Receive Date: 20100810
  Receipt Date: 20100810
  Transmission Date: 20110219
  Serious: Yes (Hospitalization)
  Sender: FDA-Public Use
  Company Number: None

PATIENT
  Age: 64 Year
  Sex: Male
  Weight: 90.7 kg

DRUGS (1)
  1. DOXYCYCLINE [Suspect]
     Indication: UPPER RESPIRATORY TRACT INFECTION
     Dosage: 100 MG BID PO
     Route: 048
     Dates: start: 20100505, end: 20100514

REACTIONS (1)
  - DERMATITIS CONTACT [None]
